FAERS Safety Report 17907005 (Version 1)
Quarter: 2020Q2

REPORT INFORMATION
  Report Type: Spontaneous
  Country: US (occurrence: US)
  Receive Date: 20200617
  Receipt Date: 20200617
  Transmission Date: 20200714
  Serious: No
  Sender: FDA-Public Use
  Company Number: US-PFIZER INC-2020234548

PATIENT
  Sex: Female

DRUGS (1)
  1. VANCOMYCIN HCL [Suspect]
     Active Substance: VANCOMYCIN HYDROCHLORIDE
     Dosage: UNK

REACTIONS (6)
  - Red man syndrome [Unknown]
  - Skin exfoliation [Unknown]
  - Malaise [Unknown]
  - Pruritus [Unknown]
  - Back pain [Unknown]
  - Rash [Unknown]
